FAERS Safety Report 6841786-6 (Version None)
Quarter: 2010Q3

REPORT INFORMATION
  Report Type: 
  Country: None (occurrence: None)
  Receive Date: 20100709
  Receipt Date: 20100628
  Transmission Date: 20110219
  Serious: Yes (Other)
  Sender: FDA-Public Use
  Company Number: 014571

PATIENT
  Age: 21 Year
  Sex: Male

DRUGS (6)
  1. VIMPAT [Suspect]
     Indication: EPILEPSY
     Dosage: (ORAL)
     Route: 048
  2. ALPRAZOLAM [Suspect]
     Dosage: (ORAL)
     Route: 048
  3. VENLAFAXINE HCL [Suspect]
     Dosage: (ORAL)
     Route: 048
  4. EPITOMAX (EPITOMAX) [Suspect]
     Dosage: (ORAL)
     Route: 048
  5. GARDENAL /00023201/ (GARDENAL) (NOT SPECIFIED) [Suspect]
     Dosage: (ORAL)
     Route: 048
  6. CLOBAZAM (CLOBAZAM) [Suspect]
     Dosage: (ORAL)
     Route: 048

REACTIONS (1)
  - PRIAPISM [None]
